FAERS Safety Report 24285429 (Version 1)
Quarter: 2024Q3

REPORT INFORMATION
  Report Type: Spontaneous
  Country: CN (occurrence: CN)
  Receive Date: 20240905
  Receipt Date: 20240905
  Transmission Date: 20241017
  Serious: Yes (Hospitalization)
  Sender: AMGEN
  Company Number: CN-AMGEN-CHNSP2024172526

PATIENT
  Age: 64 Year
  Sex: Female
  Weight: 71 kg

DRUGS (3)
  1. XGEVA [Suspect]
     Active Substance: DENOSUMAB
     Indication: Prophylaxis
     Dosage: 120 MILLIGRAM, (FREQUENCY: 1, DURATION OF REGIMEN: 1)
     Route: 058
     Dates: start: 20240806, end: 20240806
  2. PEMETREXED DISODIUM [Suspect]
     Active Substance: PEMETREXED DISODIUM
     Indication: Prophylaxis
     Dosage: 500 MILLIGRAM (FREQUENCY: 1, DURATION OF REGIMEN: 1)
     Route: 042
     Dates: start: 20240805, end: 20240805
  3. BEVACIZUMAB [Suspect]
     Active Substance: BEVACIZUMAB
     Indication: Prophylaxis
     Dosage: 400 MILLIGRAM, (FREQUENCY: 1, DURATION OF REGIMEN: 1)
     Route: 042
     Dates: start: 20240805, end: 20240805

REACTIONS (1)
  - Myelosuppression [Recovering/Resolving]

NARRATIVE: CASE EVENT DATE: 20240811
